FAERS Safety Report 7528227-0 (Version None)
Quarter: 2011Q2

REPORT INFORMATION
  Report Type: 
  Country: None (occurrence: None)
  Receive Date: 20110607
  Receipt Date: 20110106
  Transmission Date: 20111010
  Serious: Yes (Hospitalization)
  Sender: FDA-Public Use
  Company Number: US-ASTRAZENECA-2011SE00574

PATIENT
  Age: 73 Year
  Sex: Female

DRUGS (3)
  1. OMEPRAZOLE [Suspect]
     Indication: PEPTIC ULCER
     Route: 048
  2. LEVOTHYROXINE SODIUM [Concomitant]
  3. ACETAMINOPHEN AND CAFFEINE [Concomitant]
     Indication: HEADACHE
     Dosage: LOW DOSE, INRFEQUENT

REACTIONS (1)
  - TUBULOINTERSTITIAL NEPHRITIS [None]
